FAERS Safety Report 20496736 (Version 1)
Quarter: 2022Q1

REPORT INFORMATION
  Report Type: Spontaneous
  Country: GB (occurrence: GB)
  Receive Date: 20220221
  Receipt Date: 20220221
  Transmission Date: 20220424
  Serious: Yes (Life-Threatening, Other)
  Sender: FDA-Public Use
  Company Number: None

PATIENT
  Age: 30 Year
  Sex: Male
  Weight: 65 kg

DRUGS (3)
  1. TIZANIDINE [Suspect]
     Active Substance: TIZANIDINE
     Indication: Muscle spasms
     Dosage: 4 MILLIGRAM
     Route: 048
     Dates: start: 20220111, end: 20220211
  2. PREGABALIN [Concomitant]
     Active Substance: PREGABALIN
     Indication: Neuralgia
     Dosage: UNK
  3. SUMATRIPTAN [Concomitant]
     Active Substance: SUMATRIPTAN
     Indication: Migraine
     Dosage: UNK

REACTIONS (10)
  - Palpitations [Recovered/Resolved]
  - Tachycardia [Recovered/Resolved]
  - Tunnel vision [Recovered/Resolved]
  - Dizziness postural [Recovered/Resolved]
  - Arrhythmia [Recovered/Resolved]
  - Peripheral swelling [Recovered/Resolved]
  - Dizziness [Unknown]
  - Heart rate irregular [Unknown]
  - Hypotension [Unknown]
  - Sleep disorder [Unknown]

NARRATIVE: CASE EVENT DATE: 20220206
